FAERS Safety Report 12958908 (Version 1)
Quarter: 2016Q4

REPORT INFORMATION
  Report Type: Spontaneous
  Country: US (occurrence: US)
  Receive Date: 20161117
  Receipt Date: 20161117
  Transmission Date: 20170207
  Serious: No
  Sender: FDA-Public Use
  Company Number: None

PATIENT
  Age: 83 Year
  Sex: Female

DRUGS (32)
  1. DAPTOMYCIN. [Concomitant]
     Active Substance: DAPTOMYCIN
  2. FAMOTIDINE. [Concomitant]
     Active Substance: FAMOTIDINE
  3. INSULIN ASPART [Concomitant]
     Active Substance: INSULIN ASPART
  4. POTASSIUM PHOSPHATE [Concomitant]
     Active Substance: POTASSIUM PHOSPHATE
  5. PREDNISONE. [Concomitant]
     Active Substance: PREDNISONE
  6. RANITIDINE. [Concomitant]
     Active Substance: RANITIDINE
  7. TPN [Concomitant]
     Active Substance: AMINO ACIDS\DEXTROSE\ELECTROLYTES NOS\SOYBEAN OIL
  8. VANCOMYCIN [Concomitant]
     Active Substance: VANCOMYCIN
  9. NADOLOL. [Concomitant]
     Active Substance: NADOLOL
  10. HALOPERIDOL. [Concomitant]
     Active Substance: HALOPERIDOL
  11. HEPARIN [Concomitant]
     Active Substance: HEPARIN SODIUM
  12. AMIKACIN [Concomitant]
     Active Substance: AMIKACIN
  13. DIATRIZOATE [Concomitant]
     Active Substance: DIATRIZOATE MEGLUMINE
  14. LIDOCAINE. [Concomitant]
     Active Substance: LIDOCAINE
  15. NOREPINEPHRINE [Concomitant]
     Active Substance: NOREPINEPHRINE\NOREPINEPHRINE BITARTRATE
  16. ACETAMINOPHEN. [Concomitant]
     Active Substance: ACETAMINOPHEN
  17. CASPOFUNGIN [Concomitant]
     Active Substance: CASPOFUNGIN
  18. DOCUSATE [Concomitant]
     Active Substance: DOCUSATE
  19. MAGNESIUM SULFATE. [Concomitant]
     Active Substance: MAGNESIUM SULFATE
  20. MEROPENEM. [Concomitant]
     Active Substance: MEROPENEM
  21. ASPIRIN. [Concomitant]
     Active Substance: ASPIRIN
  22. QUETIAPINE. [Concomitant]
     Active Substance: QUETIAPINE
  23. AMLODIPINE [Concomitant]
     Active Substance: AMLODIPINE BESYLATE
  24. MIRTAZAPINE. [Concomitant]
     Active Substance: MIRTAZAPINE
  25. POTASSIUM CHLORIDE. [Concomitant]
     Active Substance: POTASSIUM CHLORIDE
  26. SODIIUM CHLORIDE [Concomitant]
  27. TRAMADOL. [Suspect]
     Active Substance: TRAMADOL
     Indication: PAIN
     Dosage: 50-100 MG EVERY 8 HOURS PO
     Route: 048
  28. GABAPENTIN. [Concomitant]
     Active Substance: GABAPENTIN
  29. HYDROCORTISONE. [Concomitant]
     Active Substance: HYDROCORTISONE
  30. LACTATED RINGERS [Concomitant]
     Active Substance: CALCIUM CHLORIDE\POTASSIUM CHLORIDE\SODIUM CHLORIDE\SODIUM LACTATE
  31. PHENYLEPHRINE [Concomitant]
     Active Substance: PHENYLEPHRINE\PHENYLEPHRINE HYDROCHLORIDE
  32. SENNA [Concomitant]
     Active Substance: SENNA LEAF\SENNOSIDES\SENNOSIDES A AND B

REACTIONS (3)
  - Tachypnoea [None]
  - Hyporesponsive to stimuli [None]
  - Therapy change [None]

NARRATIVE: CASE EVENT DATE: 20160911
